APPROVED DRUG PRODUCT: PENCICLOVIR
Active Ingredient: PENCICLOVIR
Strength: 1%
Dosage Form/Route: CREAM;TOPICAL
Application: A212710 | Product #001 | TE Code: AB
Applicant: TEVA PHARMACEUTICALS USA INC
Approved: Nov 9, 2022 | RLD: No | RS: No | Type: RX